FAERS Safety Report 10880494 (Version 1)
Quarter: 2015Q1

REPORT INFORMATION
  Report Type: Spontaneous
  Country: US (occurrence: US)
  Receive Date: 20150303
  Receipt Date: 20150303
  Transmission Date: 20150721
  Serious: Yes (Death)
  Sender: FDA-Public Use
  Company Number: US-ALVOGEN-2015AL000668

PATIENT
  Age: 45 Year
  Sex: Male

DRUGS (1)
  1. OXYCODONE [Suspect]
     Active Substance: OXYCODONE
     Indication: PRODUCT USED FOR UNKNOWN INDICATION
     Route: 051

REACTIONS (4)
  - Cardiac arrest [Fatal]
  - Completed suicide [Fatal]
  - Toxicity to various agents [Fatal]
  - Respiratory arrest [Fatal]
